FAERS Safety Report 21365917 (Version 1)
Quarter: 2022Q3

REPORT INFORMATION
  Report Type: Spontaneous
  Country: US (occurrence: US)
  Receive Date: 20220922
  Receipt Date: 20220922
  Transmission Date: 20221027
  Serious: No
  Sender: FDA-Public Use
  Company Number: US-BAUSCH-BL-2022-022344

PATIENT
  Sex: Female

DRUGS (2)
  1. TRETINOIN [Suspect]
     Active Substance: TRETINOIN
     Indication: Product used for unknown indication
     Dosage: OBAGI TRETINOIN 0.1 PERCENT
     Route: 061
  2. TRETINOIN [Suspect]
     Active Substance: TRETINOIN
     Route: 061
     Dates: start: 20220730, end: 20220901

REACTIONS (2)
  - Application site pain [Recovered/Resolved]
  - Product quality issue [Unknown]

NARRATIVE: CASE EVENT DATE: 20220801
